FAERS Safety Report 20754131 (Version 1)
Quarter: 2022Q2

REPORT INFORMATION
  Report Type: Spontaneous
  Country: US (occurrence: None)
  Receive Date: 20220426
  Receipt Date: 20220426
  Transmission Date: 20220721
  Serious: No
  Sender: FDA-Public Use
  Company Number: US-ROCHE-3007089

PATIENT
  Sex: Female

DRUGS (3)
  1. ESBRIET [Suspect]
     Active Substance: PIRFENIDONE
     Indication: Idiopathic pulmonary fibrosis
     Route: 048
     Dates: start: 20210928, end: 202110
  2. ESBRIET [Suspect]
     Active Substance: PIRFENIDONE
     Indication: Pulmonary fibrosis
     Dosage: 1 TABLET THREE TIMES DAILY FOR 7 DAYS, 2 TABLETS THREE TIMES DAILY FOR 7 DAYS, 3 TABLETS THREE TIMES
     Route: 048
     Dates: start: 202109
  3. OFEV [Concomitant]
     Active Substance: NINTEDANIB

REACTIONS (4)
  - Abdominal pain upper [Recovered/Resolved]
  - Diarrhoea [Unknown]
  - Hepatic enzyme increased [Unknown]
  - Flatulence [Unknown]
